FAERS Safety Report 9559427 (Version 2)
Quarter: 2014Q1

REPORT INFORMATION
  Report Type: Spontaneous
  Country: US (occurrence: None)
  Receive Date: 20130925
  Receipt Date: 20140108
  Transmission Date: 20141002
  Serious: Yes (Hospitalization)
  Sender: FDA-Public Use
  Company Number: FK201304291

PATIENT
  Age: 70 Year
  Sex: Male
  Weight: 74.8 kg

DRUGS (32)
  1. DOXORUBICIN HYDROCHLORIDE [Suspect]
     Indication: SARCOMA METASTATIC
     Dosage: REGIMEN 1 (CYCLIC)
     Dates: start: 20130404
  2. ACETAMINOPHEN (PARACETAMOL) [Concomitant]
  3. ALPRAZOLAM (ALPRAZOLAM) [Concomitant]
  4. ATORVASTATIN (ATORVASTATIN) [Concomitant]
  5. BISACODYL (BISACODYL) [Concomitant]
  6. CO Q-10 (UBIDECARENONE) [Concomitant]
  7. DEXAMETHASONE (DEXAMETHASONE) [Concomitant]
  8. ENOXAPARIN (ENOXAPARIN) [Concomitant]
  9. ESOMEPRAZOLE (ESOMEPRAZOLE) [Concomitant]
  10. GABAPENTIN (GABAPENTIN) [Concomitant]
  11. LEVOTHYROXINE (LEVOTHYROXINE) [Concomitant]
  12. MAGNESIUM CHLORIDE [Concomitant]
  13. MELOXICAM (MELOXICAM) [Concomitant]
  14. MIRTAZAPINE (MIRTAZAPINE) [Concomitant]
  15. MS CONTIN [Concomitant]
  16. MSIR (MORPHINE SULFATE) [Concomitant]
  17. ONDANSETRON (ONDANSETRON) [Concomitant]
  18. POLYETHYLENE GLYCOL (MARCROGOL) [Concomitant]
  19. PROCHLORPERAZINE (PROCHLORPERAZINE) [Concomitant]
  20. SENOKOT-S (SENOKOT-S) [Concomitant]
  21. ZOLPIDEM (ZOLPIDEM) [Concomitant]
  22. MULTIVITAMINS (MULTIVITAMINS) [Concomitant]
  23. CETAPHIL (SOFT SOAP) [Concomitant]
  24. DOCUSATE SODIUM (DOCUSATE SODIUM) [Concomitant]
  25. TAMSULOSIN HYDROCHLORIDE (TAMSULOSIN HYDROCHLORIDE) [Concomitant]
  26. LUTEIN (XANTOFYL) [Concomitant]
  27. BETACAROTENE (BETACAROTENE) [Concomitant]
  28. COPPER (COPPER) [Concomitant]
  29. SELENIUM (SELENIUM) [Concomitant]
  30. TOCOPHEROL (TOCOPHEROL) [Concomitant]
  31. XANTOFYL (XANTOFYL) [Concomitant]
  32. ZINC (ZINC) [Concomitant]

REACTIONS (6)
  - Dysuria [None]
  - Oedema peripheral [None]
  - Haemoglobin decreased [None]
  - Bacterial test positive [None]
  - Febrile neutropenia [None]
  - Systemic inflammatory response syndrome [None]
